FAERS Safety Report 4628806-4 (Version None)
Quarter: 2005Q2

REPORT INFORMATION
  Report Type: 
  Country: None (occurrence: None)
  Receive Date: 20050406
  Receipt Date: 20050324
  Transmission Date: 20051028
  Serious: Yes (Other)
  Sender: FDA-Public Use
  Company Number: CIP05000712

PATIENT
  Sex: Male

DRUGS (1)
  1. ASACOL [Suspect]
     Dosage: 800 MG, 3/DAY, ORAL
     Route: 048

REACTIONS (3)
  - BLADDER CANCER [None]
  - BLOOD URINE PRESENT [None]
  - POST PROCEDURAL HAEMORRHAGE [None]
